FAERS Safety Report 17577010 (Version 3)
Quarter: 2020Q3

REPORT INFORMATION
  Report Type: Report from Study
  Country: US (occurrence: US)
  Receive Date: 20200324
  Receipt Date: 20200721
  Transmission Date: 20201102
  Serious: Yes (Death)
  Sender: FDA-Public Use
  Company Number: NVSC2020US079109

PATIENT
  Age: 76 Year
  Sex: Male

DRUGS (2)
  1. ENTRESTO [Suspect]
     Active Substance: SACUBITRIL\VALSARTAN
     Indication: CARDIAC FAILURE CONGESTIVE
     Dosage: 1 DF (49/51 MG)
     Route: 048
     Dates: start: 2019
  2. ENTRESTO [Suspect]
     Active Substance: SACUBITRIL\VALSARTAN
     Indication: CARDIAC FAILURE CONGESTIVE
     Dosage: 0.5 DF (49/51 MG), BID
     Route: 048

REACTIONS (7)
  - Fatigue [Unknown]
  - Pancreatic carcinoma [Fatal]
  - Ageusia [Unknown]
  - Wrong technique in product usage process [Recovered/Resolved]
  - Agitation [Recovered/Resolved]
  - Abdominal discomfort [Fatal]
  - Product prescribing error [Recovered/Resolved]

NARRATIVE: CASE EVENT DATE: 201911
